FAERS Safety Report 5600999-1 (Version None)
Quarter: 2008Q1

REPORT INFORMATION
  Report Type: 
  Country: None (occurrence: None)
  Receive Date: 20080124
  Receipt Date: 20080117
  Transmission Date: 20080703
  Serious: Yes (Other)
  Sender: FDA-Public Use
  Company Number: GB-TEVA-166533ISR

PATIENT
  Age: 54 Year
  Sex: Female

DRUGS (4)
  1. SIMVASTATIN [Suspect]
     Route: 048
     Dates: start: 20061201
  2. VALPROIC ACID [Interacting]
  3. CLOBAZAM [Interacting]
  4. INSULIN PORCINE HIGHLY PURIFIED [Interacting]

REACTIONS (2)
  - CONVULSION [None]
  - DRUG INTERACTION [None]
